FAERS Safety Report 8474135-0 (Version None)
Quarter: 2012Q2

REPORT INFORMATION
  Report Type: 
  Country: None (occurrence: None)
  Receive Date: 20120628
  Receipt Date: 20120622
  Transmission Date: 20120825
  Serious: No
  Sender: FDA-Public Use
  Company Number: US-PFIZER INC-2012140060

PATIENT
  Sex: Female

DRUGS (1)
  1. INLYTA [Suspect]
     Indication: RENAL CELL CARCINOMA
     Dosage: 3 MG, 2X/DAY
     Route: 048
     Dates: start: 20120215, end: 20120607

REACTIONS (1)
  - LIPASE INCREASED [None]
